FAERS Safety Report 4596372-8 (Version None)
Quarter: 2005Q1

REPORT INFORMATION
  Report Type: 
  Country: None (occurrence: None)
  Receive Date: 20050302
  Receipt Date: 20040913
  Transmission Date: 20050727
  Serious: Yes (Death, Hospitalization, Other)
  Sender: FDA-Public Use
  Company Number: US-BRISTOL-MYERS SQUIBB COMPANY-12699104

PATIENT
  Age: 45 Year
  Sex: Male

DRUGS (15)
  1. TEQUIN [Suspect]
     Indication: CHRONIC SINUSITIS
  2. CLINDAMYCIN [Suspect]
     Indication: CHRONIC SINUSITIS
  3. AUGMENTIN [Suspect]
     Indication: CHRONIC SINUSITIS
  4. AVELOX [Suspect]
     Indication: SINUSITIS
     Route: 048
  5. ALLEGRA-D [Concomitant]
  6. FLONASE [Concomitant]
  7. NASONEX [Concomitant]
  8. PREDNISONE [Concomitant]
  9. NSAID [Concomitant]
  10. VANCOMYCIN [Concomitant]
  11. LEVAQUIN [Concomitant]
  12. ZOSYN [Concomitant]
  13. PROTONIX [Concomitant]
  14. SOLU-MEDROL [Concomitant]
  15. FLUCONAZOLE [Concomitant]

REACTIONS (11)
  - ASCITES [None]
  - CARDIAC ARREST [None]
  - CHEST PAIN [None]
  - DISSEMINATED INTRAVASCULAR COAGULATION [None]
  - HEPATIC FAILURE [None]
  - JAUNDICE [None]
  - LEUKOPENIA [None]
  - MULTI-ORGAN FAILURE [None]
  - PANCYTOPENIA [None]
  - RENAL FAILURE [None]
  - TROPONIN INCREASED [None]
